FAERS Safety Report 6022459-9 (Version None)
Quarter: 2008Q4

REPORT INFORMATION
  Report Type: 
  Country: None (occurrence: None)
  Receive Date: 20081230
  Receipt Date: 20081229
  Transmission Date: 20090506
  Serious: Yes (Other)
  Sender: FDA-Public Use
  Company Number: JM-BRISTOL-MYERS SQUIBB COMPANY-14456404

PATIENT
  Sex: Female

DRUGS (6)
  1. STAVUDINE [Suspect]
     Indication: ANTIRETROVIRAL THERAPY
  2. ZIDOVUDINE [Suspect]
     Indication: ANTIRETROVIRAL THERAPY
  3. NEVIRAPINE [Suspect]
     Indication: ANTIRETROVIRAL THERAPY
  4. LAMIVUDINE [Suspect]
     Indication: ANTIRETROVIRAL THERAPY
  5. NELFINAVIR [Suspect]
     Indication: ANTIRETROVIRAL THERAPY
  6. TICE BCG [Suspect]

REACTIONS (3)
  - ANAEMIA [None]
  - IMMUNE RECONSTITUTION SYNDROME [None]
  - LYMPHADENITIS [None]
